FAERS Safety Report 6380718-4 (Version None)
Quarter: 2009Q3

REPORT INFORMATION
  Report Type: 
  Country: None (occurrence: None)
  Receive Date: 20090924
  Receipt Date: 20090914
  Transmission Date: 20100115
  Serious: Yes (Other)
  Sender: FDA-Public Use
  Company Number: 2009SP025470

PATIENT
  Age: 59 Year
  Sex: Female

DRUGS (2)
  1. INTEGRILIN [Suspect]
     Indication: DRUG USE FOR UNKNOWN INDICATION
  2. HEPARIN [Concomitant]

REACTIONS (5)
  - CATHETER SITE DISCHARGE [None]
  - DRUG SPECIFIC ANTIBODY PRESENT [None]
  - HAEMORRHAGE URINARY TRACT [None]
  - PETECHIAE [None]
  - THROMBOCYTOPENIA [None]
